FAERS Safety Report 8017110-2 (Version None)
Quarter: 2012Q1

REPORT INFORMATION
  Report Type: 
  Country: None (occurrence: None)
  Receive Date: 20120102
  Receipt Date: 20111229
  Transmission Date: 20120608
  Serious: No
  Sender: FDA-Public Use
  Company Number: GB-ROCHE-1024720

PATIENT
  Sex: Female

DRUGS (1)
  1. ISOTRETINOIN [Suspect]
     Indication: PRODUCT USED FOR UNKNOWN INDICATION
     Route: 048
     Dates: start: 20111210, end: 20111220

REACTIONS (2)
  - NO ADVERSE EVENT [None]
  - MATERNAL EXPOSURE DURING PREGNANCY [None]
